FAERS Safety Report 4648587-8 (Version None)
Quarter: 2005Q2

REPORT INFORMATION
  Report Type: 
  Country: None (occurrence: None)
  Receive Date: 20050429
  Receipt Date: 20050422
  Transmission Date: 20051028
  Serious: Yes (Hospitalization)
  Sender: FDA-Public Use
  Company Number: PHRM2005FR01363

PATIENT
  Age: 84 Year
  Sex: Male

DRUGS (9)
  1. PREVISCAN [Suspect]
     Indication: ATRIAL FIBRILLATION
     Route: 048
     Dates: end: 20050303
  2. DIGOXIN [Concomitant]
     Route: 048
  3. EXELON [Suspect]
     Indication: DEMENTIA
     Dosage: 1.5 MG, BID
     Route: 048
     Dates: start: 20050301, end: 20050301
  4. EXELON [Suspect]
     Dosage: 1.5 MG, QD
     Route: 048
     Dates: start: 20050302, end: 20050302
  5. SERESTA [Concomitant]
     Route: 048
  6. AUGMENTIN '125' [Concomitant]
     Route: 048
     Dates: start: 20050216, end: 20050226
  7. PROZAC [Concomitant]
     Route: 048
  8. TARDYFERON [Concomitant]
     Route: 048
  9. EQUANIL [Concomitant]
     Indication: AGITATION
     Dosage: PRN
     Route: 048

REACTIONS (3)
  - AGRANULOCYTOSIS [None]
  - PETECHIAE [None]
  - VASCULAR PURPURA [None]
